FAERS Safety Report 7167143-3 (Version None)
Quarter: 2010Q4

REPORT INFORMATION
  Report Type: 
  Country: None (occurrence: None)
  Receive Date: 20101216
  Receipt Date: 20101206
  Transmission Date: 20110411
  Serious: Yes (Other)
  Sender: FDA-Public Use
  Company Number: GXKR2010GB13784

PATIENT
  Age: 51 Year
  Sex: Male

DRUGS (5)
  1. ASPIRIN [Suspect]
     Indication: ANTICOAGULANT THERAPY
  2. DIPYRIDAMOLE (NGX) [Suspect]
     Indication: ANTICOAGULANT THERAPY
  3. TINZAPARIN [Suspect]
     Indication: ANTICOAGULANT THERAPY
     Dosage: 25000 UNITS FIRST 9 DAYS
     Route: 058
  4. TINZAPARIN [Suspect]
     Dosage: 15000 UNITS NEXT 5 DAYS
  5. TINZAPARIN [Suspect]
     Dosage: MAINTAINED ON 18000 UNITS

REACTIONS (11)
  - COMPARTMENT SYNDROME [None]
  - FASCIOTOMY [None]
  - HAEMATOMA [None]
  - HAEMATOMA EVACUATION [None]
  - HYPOAESTHESIA [None]
  - INJECTION SITE SWELLING [None]
  - MOVEMENT DISORDER [None]
  - MUSCLE HAEMORRHAGE [None]
  - MUSCLE NECROSIS [None]
  - NERVE COMPRESSION [None]
  - NEUROLYSIS [None]
